FAERS Safety Report 9271033 (Version 4)
Quarter: 2013Q4

REPORT INFORMATION
  Report Type: Spontaneous
  Country: US (occurrence: US)
  Receive Date: 20130506
  Receipt Date: 20131224
  Transmission Date: 20140711
  Serious: Yes (Other)
  Sender: FDA-Public Use
  Company Number: US-JNJFOC-20130417533

PATIENT
  Sex: Female

DRUGS (5)
  1. TOPAMAX [Suspect]
     Indication: MIGRAINE
     Route: 048
     Dates: start: 200506, end: 200512
  2. TOPAMAX [Suspect]
     Indication: CONVULSION
     Route: 048
     Dates: start: 200506, end: 200512
  3. FOLIC ACID [Concomitant]
     Indication: PREGNANCY
     Route: 065
  4. PRENATAL VITAMINS [Concomitant]
     Indication: PREGNANCY
     Route: 065
  5. CALCIUM [Concomitant]
     Indication: PREGNANCY
     Route: 065

REACTIONS (6)
  - Exposure during pregnancy [Recovered/Resolved]
  - Arrested labour [Recovered/Resolved]
  - Emotional distress [Unknown]
  - Disturbance in attention [Recovered/Resolved]
  - Paraesthesia [Recovered/Resolved]
  - Nausea [Unknown]
